FAERS Safety Report 16664549 (Version 1)
Quarter: 2019Q3

REPORT INFORMATION
  Report Type: Report from Study
  Country: US (occurrence: US)
  Receive Date: 20190802
  Receipt Date: 20190802
  Transmission Date: 20191004
  Serious: Yes (Hospitalization)
  Sender: FDA-Public Use
  Company Number: US-ACTELION-A-NJ2019-193814

PATIENT
  Sex: Male

DRUGS (10)
  1. MICRO-K [Concomitant]
     Active Substance: POTASSIUM CHLORIDE
  2. CARVEDILOL. [Concomitant]
     Active Substance: CARVEDILOL
  3. MULTIVITAMIN [Concomitant]
     Active Substance: VITAMINS
  4. PROGRAF [Concomitant]
     Active Substance: TACROLIMUS\TACROLIMUS ANHYDROUS
  5. OPSUMIT [Suspect]
     Active Substance: MACITENTAN
     Indication: PULMONARY ARTERIAL HYPERTENSION
     Dosage: 10 MG, QD
     Route: 048
     Dates: start: 20170721
  6. METOLAZONE. [Concomitant]
     Active Substance: METOLAZONE
  7. PREDNISONE. [Concomitant]
     Active Substance: PREDNISONE
  8. ALLOPURINOL. [Concomitant]
     Active Substance: ALLOPURINOL
  9. AMILORIDE [Concomitant]
     Active Substance: AMILORIDE
  10. FUROSEMIDE. [Concomitant]
     Active Substance: FUROSEMIDE

REACTIONS (1)
  - Hospitalisation [Unknown]
